FAERS Safety Report 8071943-5 (Version None)
Quarter: 2012Q1

REPORT INFORMATION
  Report Type: 
  Country: None (occurrence: None)
  Receive Date: 20120119
  Receipt Date: 20111228
  Transmission Date: 20120608
  Serious: Yes (Hospitalization)
  Sender: FDA-Public Use
  Company Number: COL_10399_2011

PATIENT
  Sex: Male

DRUGS (3)
  1. CHLORHEXIDINE GLUCONATE [Suspect]
     Indication: DENTAL PLAQUE
     Dosage: (1 DF BID)
     Dates: start: 20110524, end: 20110601
  2. CHLORHEXIDINE GLUCONATE [Suspect]
     Indication: GINGIVITIS
     Dosage: (1 DF BID)
     Dates: start: 20110524, end: 20110601
  3. CHLORHEXIDINE GLUCONATE [Suspect]
     Indication: ORAL DISCOMFORT
     Dosage: (1 DF BID)
     Dates: start: 20110524, end: 20110601

REACTIONS (15)
  - LIP DRY [None]
  - BURNING SENSATION [None]
  - DYSPNOEA [None]
  - LIP PAIN [None]
  - MALAISE [None]
  - CARDIAC FAILURE CONGESTIVE [None]
  - DRY MOUTH [None]
  - FEELING ABNORMAL [None]
  - ORAL DISCOMFORT [None]
  - DENTAL CARIES [None]
  - GINGIVITIS [None]
  - ASBESTOSIS [None]
  - CHEST X-RAY ABNORMAL [None]
  - CARDIAC FAILURE [None]
  - UPPER RESPIRATORY TRACT INFECTION [None]
